FAERS Safety Report 4963192-1 (Version None)
Quarter: 2006Q2

REPORT INFORMATION
  Report Type: 
  Country: None (occurrence: None)
  Receive Date: 20060405
  Receipt Date: 20051205
  Transmission Date: 20061013
  Serious: Yes (Hospitalization, Disabling)
  Sender: FDA-Public Use
  Company Number: US-MERCK-0512USA00840

PATIENT
  Age: 47 Year
  Sex: Male
  Weight: 70 kg

DRUGS (4)
  1. VIOXX [Suspect]
     Indication: BACK PAIN
     Route: 048
     Dates: start: 20020823, end: 20030125
  2. VIOXX [Suspect]
     Indication: SCIATICA
     Route: 048
     Dates: start: 20020823, end: 20030125
  3. LORCET-HD [Concomitant]
     Route: 065
     Dates: start: 20021101
  4. HYDROCODONE BITARTRATE + ACETAMINOPHEN [Concomitant]
     Indication: PAIN
     Route: 065
     Dates: start: 20020301, end: 20021001

REACTIONS (3)
  - CARDIAC DISORDER [None]
  - HYPERTENSION [None]
  - MYOCARDIAL INFARCTION [None]
